FAERS Safety Report 13191047 (Version 1)
Quarter: 2017Q1

REPORT INFORMATION
  Report Type: Spontaneous
  Country: FR (occurrence: FR)
  Receive Date: 20170207
  Receipt Date: 20170207
  Transmission Date: 20170428
  Serious: Yes (Hospitalization, Other)
  Sender: FDA-Public Use
  Company Number: FR-BRISTOL-MYERS SQUIBB COMPANY-BMS-2017-007857

PATIENT
  Age: 84 Year
  Sex: Female
  Weight: 50 kg

DRUGS (2)
  1. KARDEGIC [Suspect]
     Active Substance: ASPIRIN LYSINE
     Indication: MYOCARDIAL ISCHAEMIA
     Dosage: 1 DF, QD
     Route: 048
  2. COUMADINE [Suspect]
     Active Substance: WARFARIN SODIUM
     Indication: MYOCARDIAL ISCHAEMIA
     Dosage: 0.5 MG, QD
     Route: 048
     Dates: end: 20161125

REACTIONS (5)
  - Gastrointestinal haemorrhage [Recovered/Resolved]
  - Packed red blood cell transfusion [Unknown]
  - Cardiogenic shock [Unknown]
  - Haemorrhagic anaemia [Recovering/Resolving]
  - Rectal haemorrhage [Unknown]

NARRATIVE: CASE EVENT DATE: 20161123
